FAERS Safety Report 18314419 (Version 1)
Quarter: 2020Q3

REPORT INFORMATION
  Report Type: Spontaneous
  Country: US (occurrence: US)
  Receive Date: 20200925
  Receipt Date: 20200925
  Transmission Date: 20201103
  Serious: No
  Sender: FDA-Public Use
  Company Number: US-PFIZER INC-2020368469

PATIENT

DRUGS (1)
  1. GABAPENTIN. [Suspect]
     Active Substance: GABAPENTIN
     Indication: GENE MUTATION
     Dosage: UNK

REACTIONS (3)
  - Off label use [Unknown]
  - Illness [Unknown]
  - Product use in unapproved indication [Unknown]
